FAERS Safety Report 23058841 (Version 1)
Quarter: 2023Q4

REPORT INFORMATION
  Report Type: Spontaneous
  Country: US (occurrence: None)
  Receive Date: 20231011
  Receipt Date: 20231011
  Transmission Date: 20240110
  Serious: No
  Sender: FDA-Public Use
  Company Number: None

PATIENT
  Age: 32 Year
  Sex: Female

DRUGS (1)
  1. SOFOSBUVIR\VELPATASVIR [Suspect]
     Active Substance: SOFOSBUVIR\VELPATASVIR
     Indication: Hepatitis
     Dosage: FREQUENCY : DAILY;?
     Route: 048
     Dates: start: 20230920

REACTIONS (2)
  - Nightmare [None]
  - Agitation [None]

NARRATIVE: CASE EVENT DATE: 20230920
